FAERS Safety Report 14822827 (Version 2)
Quarter: 2018Q2

REPORT INFORMATION
  Report Type: Spontaneous
  Country: US (occurrence: US)
  Receive Date: 20180427
  Receipt Date: 20180517
  Transmission Date: 20180711
  Serious: No
  Sender: FDA-Public Use
  Company Number: US-PFIZER INC-2018170996

PATIENT
  Age: 17 Year
  Sex: Female

DRUGS (2)
  1. WATER BACTERIOSTATIC [Suspect]
     Active Substance: WATER
     Dosage: 0.1 ML, UNK
     Route: 051
     Dates: start: 201801
  2. WATER BACTERIOSTATIC [Suspect]
     Active Substance: WATER
     Dosage: UNK
     Route: 051

REACTIONS (1)
  - Injection site pain [Recovered/Resolved]

NARRATIVE: CASE EVENT DATE: 20180108
